FAERS Safety Report 6093090-4 (Version None)
Quarter: 2009Q1

REPORT INFORMATION
  Report Type: 
  Country: None (occurrence: None)
  Receive Date: 20090224
  Receipt Date: 20090224
  Transmission Date: 20090719
  Serious: Yes (Other)
  Sender: FDA-Public Use
  Company Number: None

PATIENT
  Sex: Female
  Weight: 91.6266 kg

DRUGS (1)
  1. ASMANEX TWISTHALER [Suspect]
     Indication: DYSPNOEA
     Dosage: 100MCG DAILY
     Dates: start: 20090218

REACTIONS (4)
  - ABDOMINAL DISCOMFORT [None]
  - FEELING ABNORMAL [None]
  - NAUSEA [None]
  - PHARYNGEAL DISORDER [None]
